FAERS Safety Report 11588401 (Version 1)
Quarter: 2015Q4

REPORT INFORMATION
  Report Type: Spontaneous
  Country: US (occurrence: None)
  Receive Date: 20151001
  Receipt Date: 20151001
  Transmission Date: 20160304
  Serious: Yes (Disabling, Other)
  Sender: FDA-Public Use
  Company Number: None

PATIENT
  Age: 42 Year
  Sex: Female
  Weight: 76.2 kg

DRUGS (12)
  1. TRANSFER BOARD [Concomitant]
  2. ADULT DIAPERS [Concomitant]
  3. CALTRATE [Concomitant]
     Active Substance: CALCIUM CARBONATE
  4. NEXIUM [Suspect]
     Active Substance: ESOMEPRAZOLE MAGNESIUM
     Indication: GASTROOESOPHAGEAL REFLUX DISEASE
     Route: 048
  5. SHOWER CHAIR [Concomitant]
  6. SIMPONI [Concomitant]
     Active Substance: GOLIMUMAB
  7. CALCIUM VITAMIN D [Suspect]
     Active Substance: CALCIUM\VITAMIN D
  8. POWER CHAIR [Concomitant]
  9. PRILOSEC [Concomitant]
     Active Substance: OMEPRAZOLE MAGNESIUM
  10. METHOTREXATE [Concomitant]
     Active Substance: METHOTREXATE
  11. PREDNISONE. [Concomitant]
     Active Substance: PREDNISONE
  12. NAPROXEN. [Suspect]
     Active Substance: NAPROXEN

REACTIONS (5)
  - Compression fracture [None]
  - Wheelchair user [None]
  - Abasia [None]
  - Quality of life decreased [None]
  - Bone loss [None]

NARRATIVE: CASE EVENT DATE: 20100707
